FAERS Safety Report 12328713 (Version 1)
Quarter: 2016Q2

REPORT INFORMATION
  Report Type: Spontaneous
  Country: US (occurrence: US)
  Receive Date: 20160503
  Receipt Date: 20160503
  Transmission Date: 20160815
  Serious: No
  Sender: FDA-Public Use
  Company Number: US-BEH-2015050303

PATIENT
  Sex: Female
  Weight: 56 kg

DRUGS (25)
  1. ADVIL [Concomitant]
     Active Substance: IBUPROFEN
  2. LEVSIN [Concomitant]
     Active Substance: HYOSCYAMINE SULFATE
  3. SINGULAIR [Concomitant]
     Active Substance: MONTELUKAST SODIUM
  4. LIPITOR [Concomitant]
     Active Substance: ATORVASTATIN CALCIUM
  5. CALCIUM+D3 [Concomitant]
  6. NATURAL VITAMIN [Concomitant]
  7. HYOSCYAMINE. [Concomitant]
     Active Substance: HYOSCYAMINE
  8. EVENING PRIMOSE [Concomitant]
  9. GAS-X [Concomitant]
     Active Substance: DIMETHICONE
  10. MULTIVITAMIN [Concomitant]
     Active Substance: VITAMINS
  11. DIPHENHYDRAMINE. [Concomitant]
     Active Substance: DIPHENHYDRAMINE
  12. ACIDOPHILUS [Concomitant]
     Active Substance: LACTOBACILLUS ACIDOPHILUS
  13. ALBUTEROL. [Concomitant]
     Active Substance: ALBUTEROL
  14. PREDNISOLONE. [Concomitant]
     Active Substance: PREDNISOLONE
  15. LIDOCAINE/PRILOCAINE [Concomitant]
  16. EPIPEN [Concomitant]
     Active Substance: EPINEPHRINE
  17. OXYGEN. [Concomitant]
     Active Substance: OXYGEN
  18. FLUTICASONE [Concomitant]
     Active Substance: FLUTICASONE\FLUTICASONE PROPIONATE
  19. HIZENTRA [Suspect]
     Active Substance: HUMAN IMMUNOGLOBULIN G
     Indication: IMMUNODEFICIENCY COMMON VARIABLE
     Route: 058
  20. DOXYCYCLINE. [Concomitant]
     Active Substance: DOXYCYCLINE
  21. SYMBICORT [Concomitant]
     Active Substance: BUDESONIDE\FORMOTEROL FUMARATE DIHYDRATE
  22. PROVENTIL [Concomitant]
     Active Substance: ALBUTEROL
  23. SPIRIVA [Concomitant]
     Active Substance: TIOTROPIUM BROMIDE MONOHYDRATE
  24. XOLAIR [Concomitant]
     Active Substance: OMALIZUMAB
  25. TRIAMETERENE-HCTZ [Concomitant]

REACTIONS (2)
  - Infusion site mass [Recovered/Resolved]
  - Infusion site pain [Recovered/Resolved]
